FAERS Safety Report 5889000-2 (Version None)
Quarter: 2008Q3

REPORT INFORMATION
  Report Type: 
  Country: None (occurrence: None)
  Receive Date: 20080919
  Receipt Date: 20080729
  Transmission Date: 20090109
  Serious: No
  Sender: FDA-Public Use
  Company Number: US-BAYER-200825505NA

PATIENT
  Age: 60 Year
  Sex: Male

DRUGS (5)
  1. LEVITRA [Suspect]
     Indication: ERECTILE DYSFUNCTION
     Dosage: UNIT DOSE: 20 MG
     Route: 048
     Dates: start: 20030101, end: 20080201
  2. HYDROCHLOROTHIAZIDE [Concomitant]
  3. COZAAR [Concomitant]
  4. LEXAPRO [Concomitant]
     Indication: ANXIETY
  5. PRILOSEC [Concomitant]

REACTIONS (2)
  - ERECTILE DYSFUNCTION [None]
  - HEADACHE [None]
